FAERS Safety Report 10715979 (Version 1)
Quarter: 2015Q1

REPORT INFORMATION
  Report Type: Spontaneous
  Country: US (occurrence: None)
  Receive Date: 20150109
  Receipt Date: 20150109
  Transmission Date: 20150721
  Serious: Yes (Hospitalization, Other)
  Sender: FDA-Public Use
  Company Number: 2014PROUSA03901

PATIENT
  Age: 81 Year
  Sex: Male
  Weight: 78.5 kg

DRUGS (9)
  1. ESOMEPRAZOLE (ESOMEPRAZOLE) [Concomitant]
     Active Substance: ESOMEPRAZOLE
  2. VICODIN [Concomitant]
     Active Substance: ACETAMINOPHEN\HYDROCODONE BITARTRATE
  3. LANSOPRAZOLE (LANSOPRAZOLE) [Concomitant]
     Active Substance: LANSOPRAZOLE
  4. JEVTANA (CABAZITAXEL) [Concomitant]
  5. CALCIUM (CALCIUM CARBONATE) [Concomitant]
  6. PROVENGE [Suspect]
     Active Substance: SIPULEUCEL-T
     Indication: PROSTATE CANCER METASTATIC
     Route: 042
     Dates: start: 20120329, end: 20120329
  7. ASA (ACETYLSALICYCLIC ACID) [Concomitant]
     Route: 042
     Dates: start: 20120322, end: 20120322
  8. FLUOROMETHOLONE (FLUOROMETHOLONE) [Concomitant]
  9. PREDNISOLONE (PREDNISOLONE) [Concomitant]
     Active Substance: PREDNISOLONE

REACTIONS (1)
  - Cerebrovascular accident [None]

NARRATIVE: CASE EVENT DATE: 20140424
